FAERS Safety Report 6844075-9 (Version None)
Quarter: 2010Q3

REPORT INFORMATION
  Report Type: 
  Country: None (occurrence: None)
  Receive Date: 20100714
  Receipt Date: 20100714
  Transmission Date: 20110219
  Serious: No
  Sender: FDA-Public Use
  Company Number: None

PATIENT
  Sex: Female
  Weight: 129.2752 kg

DRUGS (1)
  1. FLUTICASONE PROPIONATE [Suspect]
     Indication: SINUSITIS
     Dosage: 1-2 SPRAYS DAILY NASAL
     Route: 045
     Dates: start: 20100601, end: 20100601

REACTIONS (2)
  - ANOSMIA [None]
  - DYSGEUSIA [None]
